FAERS Safety Report 18767542 (Version 1)
Quarter: 2021Q1

REPORT INFORMATION
  Report Type: Spontaneous
  Country: US (occurrence: US)
  Receive Date: 20210121
  Receipt Date: 20210121
  Transmission Date: 20210419
  Serious: Yes (Hospitalization, Other)
  Sender: FDA-Public Use
  Company Number: US-CURIUM-199200061

PATIENT
  Sex: Male

DRUGS (1)
  1. TECHNESCAN HDP [Suspect]
     Active Substance: TECHNETIUM TC-99M OXIDRONATE
     Indication: BONE SCAN
     Dates: start: 19921117, end: 19921117

REACTIONS (1)
  - Syncope [Unknown]

NARRATIVE: CASE EVENT DATE: 19921117
